FAERS Safety Report 14126803 (Version 3)
Quarter: 2019Q4

REPORT INFORMATION
  Report Type: Report from Study
  Country: BR (occurrence: BR)
  Receive Date: 20171025
  Receipt Date: 20191108
  Transmission Date: 20200122
  Serious: Yes (Other)
  Sender: FDA-Public Use
  Company Number: BR-BIOGEN-2017BI00367975

PATIENT
  Age: 57 Year
  Sex: Female

DRUGS (5)
  1. TECFIDERA [Suspect]
     Active Substance: DIMETHYL FUMARATE
     Dosage: AT 09 AM AND 09 PM.?MAINTENANCE DOSE
     Route: 048
  2. TECFIDERA [Suspect]
     Active Substance: DIMETHYL FUMARATE
     Indication: MULTIPLE SCLEROSIS
     Dosage: AT 09 AM AND 09 PM.?STARTING DOSE
     Route: 048
     Dates: start: 20170209
  3. TECFIDERA [Suspect]
     Active Substance: DIMETHYL FUMARATE
     Dosage: MAINTENANCE DOSE
     Route: 048
     Dates: start: 201702
  4. CAPTOPRIL. [Concomitant]
     Active Substance: CAPTOPRIL
     Indication: HYPERTENSION
     Route: 065
  5. OMEGA 3 [Concomitant]
     Active Substance: OMEGA-3 FATTY ACIDS
     Indication: PRODUCT USED FOR UNKNOWN INDICATION
     Dosage: AT 11PM
     Route: 065

REACTIONS (46)
  - Decreased appetite [Not Recovered/Not Resolved]
  - Balance disorder [Not Recovered/Not Resolved]
  - Pain in extremity [Unknown]
  - Muscle spasms [Not Recovered/Not Resolved]
  - Nervousness [Not Recovered/Not Resolved]
  - Vomiting [Not Recovered/Not Resolved]
  - Visual impairment [Not Recovered/Not Resolved]
  - Eye irritation [Not Recovered/Not Resolved]
  - Renal disorder [Unknown]
  - Headache [Not Recovered/Not Resolved]
  - Abdominal pain [Not Recovered/Not Resolved]
  - Arthralgia [Not Recovered/Not Resolved]
  - Pollakiuria [Unknown]
  - Gait disturbance [Unknown]
  - Paraesthesia [Unknown]
  - Product dose omission [Unknown]
  - Nausea [Unknown]
  - Pruritus [Not Recovered/Not Resolved]
  - Flatulence [Not Recovered/Not Resolved]
  - Feeling hot [Unknown]
  - Gait inability [Not Recovered/Not Resolved]
  - Dizziness [Not Recovered/Not Resolved]
  - Ear infection [Unknown]
  - Hypoaesthesia [Unknown]
  - Insomnia [Unknown]
  - Rhinitis [Unknown]
  - Flushing [Unknown]
  - Photopsia [Not Recovered/Not Resolved]
  - Eye pain [Not Recovered/Not Resolved]
  - Speech disorder [Unknown]
  - Malaise [Not Recovered/Not Resolved]
  - Erythema [Unknown]
  - Sensory loss [Not Recovered/Not Resolved]
  - Thermal burn [Unknown]
  - Abdominal discomfort [Unknown]
  - Monoplegia [Not Recovered/Not Resolved]
  - Back pain [Not Recovered/Not Resolved]
  - Abdominal distension [Unknown]
  - Neuralgia [Not Recovered/Not Resolved]
  - Fall [Recovered/Resolved]
  - Blood creatinine increased [Unknown]
  - Coordination abnormal [Not Recovered/Not Resolved]
  - Skin laceration [Unknown]
  - Neck pain [Unknown]
  - Constipation [Not Recovered/Not Resolved]
  - Burning sensation [Unknown]

NARRATIVE: CASE EVENT DATE: 20170907
